FAERS Safety Report 7681364-2 (Version None)
Quarter: 2011Q3

REPORT INFORMATION
  Report Type: 
  Country: None (occurrence: None)
  Receive Date: 20110812
  Receipt Date: 20110801
  Transmission Date: 20111222
  Serious: Yes (Hospitalization, Other)
  Sender: FDA-Public Use
  Company Number: US-CELGENEUS-163-21880-11080881

PATIENT
  Sex: Female
  Weight: 59.02 kg

DRUGS (10)
  1. REVLIMID [Suspect]
     Dosage: 10 MILLIGRAM
     Route: 048
     Dates: start: 20110624
  2. ASPIRIN [Concomitant]
     Dosage: 81
     Route: 065
  3. COLACE [Concomitant]
     Dosage: 81
     Route: 065
  4. TYLENOL-500 [Concomitant]
     Dosage: 81
     Route: 065
  5. REVLIMID [Suspect]
     Indication: MULTIPLE MYELOMA
     Dosage: 10 MILLIGRAM
     Route: 048
     Dates: start: 20110512, end: 20110529
  6. FLONASE [Concomitant]
     Dosage: 81
     Route: 065
  7. SENNA [Concomitant]
     Dosage: 81
     Route: 065
  8. GLUCOSAMINE/CHONDROITIN [Concomitant]
     Dosage: 81
     Route: 065
  9. METOPROLOL TARTRATE [Concomitant]
     Dosage: 81
     Route: 065
  10. NASONEX [Concomitant]
     Dosage: 81
     Route: 065

REACTIONS (2)
  - WHITE BLOOD CELL COUNT DECREASED [None]
  - GALLBLADDER DISORDER [None]
